FAERS Safety Report 13506616 (Version 1)
Quarter: 2017Q2

REPORT INFORMATION
  Report Type: Spontaneous
  Country: US (occurrence: US)
  Receive Date: 20170502
  Receipt Date: 20170502
  Transmission Date: 20170830
  Serious: No
  Sender: FDA-Public Use
  Company Number: US-ROCHE-1341095

PATIENT
  Sex: Female

DRUGS (3)
  1. CITALOPRAM [Concomitant]
     Active Substance: CITALOPRAM HYDROBROMIDE
     Route: 065
  2. ALPRAZOLAM. [Concomitant]
     Active Substance: ALPRAZOLAM
     Route: 065
  3. AVASTIN [Suspect]
     Active Substance: BEVACIZUMAB
     Indication: COLON CANCER METASTATIC
     Dosage: EVERY OTHER WEEK
     Route: 065
     Dates: start: 2005

REACTIONS (11)
  - Muscle spasms [Unknown]
  - Alopecia [Unknown]
  - Sinus pain [Unknown]
  - Rhinorrhoea [Unknown]
  - Sinusitis [Unknown]
  - Thrombosis [Unknown]
  - Scab [Unknown]
  - Hypertension [Unknown]
  - Facial pain [Unknown]
  - Epistaxis [Unknown]
  - Headache [Unknown]
